FAERS Safety Report 22636426 (Version 1)
Quarter: 2023Q2

REPORT INFORMATION
  Report Type: Spontaneous
  Country: SE (occurrence: SE)
  Receive Date: 20230623
  Receipt Date: 20230623
  Transmission Date: 20230722
  Serious: Yes (Disabling)
  Sender: FDA-Public Use
  Company Number: None

PATIENT
  Age: 34 Year
  Sex: Female
  Weight: 60 kg

DRUGS (1)
  1. KYLEENA [Suspect]
     Active Substance: LEVONORGESTREL
     Indication: Endometriosis
     Dosage: 17.5?G/DAY
     Route: 015
     Dates: start: 20230309, end: 20230529

REACTIONS (8)
  - Visual impairment [Recovered/Resolved]
  - Impulse-control disorder [Unknown]
  - Cognitive disorder [Recovering/Resolving]
  - Uterine pain [Recovered/Resolved]
  - Burnout syndrome [Unknown]
  - Suicidal ideation [Recovering/Resolving]
  - Headache [Recovered/Resolved]
  - Acne cystic [Recovering/Resolving]
